FAERS Safety Report 5772340-5 (Version None)
Quarter: 2008Q2

REPORT INFORMATION
  Report Type: 
  Country: None (occurrence: None)
  Receive Date: 20080611
  Receipt Date: 20080602
  Transmission Date: 20081010
  Serious: Yes (Other)
  Sender: FDA-Public Use
  Company Number: CHNY2008DE01967

PATIENT
  Age: 45 Year
  Sex: Female
  Weight: 63 kg

DRUGS (6)
  1. NICOTINELL TTS               (NICOTINE) TRANS-THERAPEUTIC-SYSTEM [Suspect]
     Indication: SMOKING CESSATION THERAPY
     Dosage: 21 MG, TRANSDERMAL; 14 MG, TRANSDERMAL
     Route: 062
     Dates: start: 20080424, end: 20080507
  2. NICOTINELL TTS               (NICOTINE) TRANS-THERAPEUTIC-SYSTEM [Suspect]
     Indication: SMOKING CESSATION THERAPY
     Dosage: 21 MG, TRANSDERMAL; 14 MG, TRANSDERMAL
     Route: 062
     Dates: start: 20080508, end: 20080514
  3. ZONTIC [Concomitant]
  4. VOLTAREN /00372304/ (DICLOFENAC POTASSIUM) [Concomitant]
  5. PANTOPRAZOLE SODIUM [Concomitant]
  6. ZOMIG [Concomitant]

REACTIONS (2)
  - GENERALISED ERYTHEMA [None]
  - RASH PRURITIC [None]
